FAERS Safety Report 9928427 (Version 1)
Quarter: 2014Q1

REPORT INFORMATION
  Report Type: Report from Study
  Country: US (occurrence: US)
  Receive Date: 20140227
  Receipt Date: 20140227
  Transmission Date: 20141002
  Serious: Yes (Other)
  Sender: FDA-Public Use
  Company Number: US-ROCHE-1329689

PATIENT
  Age: 49 Year
  Sex: Female

DRUGS (8)
  1. LUCENTIS [Suspect]
     Indication: DIABETIC RETINOPATHY
     Route: 050
  2. LUCENTIS [Suspect]
     Route: 050
  3. GLIMEPIRIDE [Concomitant]
  4. ASA [Concomitant]
     Route: 065
  5. METFORMIN [Concomitant]
     Route: 065
  6. FLONASE [Concomitant]
  7. DIOVAN [Concomitant]
  8. IBUPROFEN [Concomitant]
     Dosage: PRN
     Route: 065

REACTIONS (14)
  - Diabetic retinal oedema [Recovered/Resolved]
  - Eye haemorrhage [Unknown]
  - Muscle strain [Unknown]
  - Vitreous floaters [Unknown]
  - Hypertension [Unknown]
  - Vision blurred [Unknown]
  - Vitreous detachment [Recovered/Resolved]
  - Myalgia [Unknown]
  - Diplopia [Unknown]
  - Vitreous haemorrhage [Unknown]
  - Macular fibrosis [Recovered/Resolved]
  - Vision blurred [Unknown]
  - Vitreous haemorrhage [Unknown]
  - Retinal detachment [Recovered/Resolved]
